FAERS Safety Report 6239386-4 (Version None)
Quarter: 2009Q2

REPORT INFORMATION
  Report Type: 
  Country: None (occurrence: None)
  Receive Date: 20090622
  Receipt Date: 20090615
  Transmission Date: 20091009
  Serious: Yes (Hospitalization)
  Sender: FDA-Public Use
  Company Number: US-ABBOTT-09P-163-0579838-00

PATIENT
  Sex: Male
  Weight: 74.91 kg

DRUGS (4)
  1. KALETRA [Suspect]
     Indication: HIV INFECTION
     Route: 048
     Dates: start: 20050801
  2. LEXAPRO [Concomitant]
     Indication: DEPRESSION
     Route: 048
  3. KLONOPIN [Concomitant]
     Indication: INSOMNIA
     Route: 048
  4. SEROSTIM [Concomitant]
     Indication: BLOOD GROWTH HORMONE
     Route: 048

REACTIONS (1)
  - INGUINAL HERNIA [None]
